FAERS Safety Report 9650852 (Version 1)
Quarter: 2013Q4

REPORT INFORMATION
  Report Type: Spontaneous
  Country: FR (occurrence: FR)
  Receive Date: 20131029
  Receipt Date: 20131029
  Transmission Date: 20140711
  Serious: Yes (Other)
  Sender: FDA-Public Use
  Company Number: FR-009507513-1310FRA010003

PATIENT
  Age: 68 Year
  Sex: Female

DRUGS (1)
  1. INEGY [Suspect]
     Indication: HYPERCHOLESTEROLAEMIA
     Dosage: 1 DF, BID
     Route: 048
     Dates: start: 20081107, end: 20120808

REACTIONS (14)
  - Rash [Recovered/Resolved]
  - Headache [Not Recovered/Not Resolved]
  - Skin fissures [Unknown]
  - Pain [Not Recovered/Not Resolved]
  - Lipoma [Unknown]
  - Alopecia [Unknown]
  - Blood pressure decreased [Unknown]
  - Bradycardia [Unknown]
  - Choking [Unknown]
  - Fatigue [Not Recovered/Not Resolved]
  - Tooth loss [Unknown]
  - Blood creatinine abnormal [Not Recovered/Not Resolved]
  - Blood creatine phosphokinase increased [Recovering/Resolving]
  - Gamma-glutamyltransferase increased [Recovering/Resolving]
